FAERS Safety Report 17440312 (Version 2)
Quarter: 2020Q1

REPORT INFORMATION
  Report Type: Spontaneous
  Country: US (occurrence: US)
  Receive Date: 20200220
  Receipt Date: 20200303
  Transmission Date: 20200409
  Serious: No
  Sender: FDA-Public Use
  Company Number: US-GLAXOSMITHKLINE-US2020026144

PATIENT
  Age: 77 Year
  Sex: Male

DRUGS (2)
  1. SORIATANE [Suspect]
     Active Substance: ACITRETIN
     Dosage: 10 MG
  2. SORIATANE [Suspect]
     Active Substance: ACITRETIN
     Indication: PRODUCT USED FOR UNKNOWN INDICATION
     Dosage: 25 MG, 1D
     Route: 048
     Dates: start: 201912

REACTIONS (2)
  - Nonspecific reaction [Unknown]
  - Skin exfoliation [Not Recovered/Not Resolved]

NARRATIVE: CASE EVENT DATE: 201912
